FAERS Safety Report 5278202-4 (Version None)
Quarter: 2007Q1

REPORT INFORMATION
  Report Type: 
  Country: None (occurrence: None)
  Receive Date: 20061213
  Receipt Date: 20060525
  Transmission Date: 20070707
  Serious: Yes (Hospitalization)
  Sender: FDA-Public Use
  Company Number: 2006UW10256

PATIENT
  Sex: Female

DRUGS (5)
  1. SEROQUEL [Suspect]
     Dosage: 600 MG DAILY PO
     Route: 048
  2. ZYPREXA [Suspect]
     Dosage: 5 MG
  3. LASIX [Suspect]
     Dosage: 20 MG
  4. PRINIVIL [Suspect]
     Dosage: 5 MG
  5. LOPRESSOR [Suspect]
     Dosage: 25 MG

REACTIONS (1)
  - HYPOTENSION [None]
